FAERS Safety Report 24126920 (Version 1)
Quarter: 2024Q3

REPORT INFORMATION
  Report Type: Spontaneous
  Country: US (occurrence: None)
  Receive Date: 20240723
  Receipt Date: 20240723
  Transmission Date: 20241016
  Serious: Yes (Death, Hospitalization)
  Sender: Public
  Company Number: None

PATIENT
  Age: 64 Year
  Sex: Female
  Weight: 69.9 kg

DRUGS (1)
  1. CYTARABINE\DAUNORUBICIN [Suspect]
     Active Substance: CYTARABINE\DAUNORUBICIN
     Dosage: OTHER QUANTITY : 232.32 MG;?
     Dates: end: 20240709

REACTIONS (22)
  - Oxygen saturation decreased [None]
  - Tachypnoea [None]
  - Hypopnoea [None]
  - Use of accessory respiratory muscles [None]
  - Bradycardia [None]
  - Nodal rhythm [None]
  - Hypotension [None]
  - Pulmonary oedema [None]
  - Pleural effusion [None]
  - Pulmonary congestion [None]
  - Generalised oedema [None]
  - Acute kidney injury [None]
  - Urine output decreased [None]
  - Haemoglobin decreased [None]
  - Atrial flutter [None]
  - Atrial conduction time prolongation [None]
  - Sinus arrest [None]
  - Carditis [None]
  - Hypervolaemia [None]
  - Respiratory failure [None]
  - Dialysis [None]
  - Gastrointestinal haemorrhage [None]

NARRATIVE: CASE EVENT DATE: 20240719
